FAERS Safety Report 12465160 (Version 1)
Quarter: 2016Q2

REPORT INFORMATION
  Report Type: Spontaneous
  Country: US (occurrence: US)
  Receive Date: 20160614
  Receipt Date: 20160614
  Transmission Date: 20160815
  Serious: No
  Sender: FDA-Public Use
  Company Number: US-BAYER-2016-116411

PATIENT
  Age: 48 Year
  Sex: Female

DRUGS (1)
  1. CLIMARA [Suspect]
     Active Substance: ESTRADIOL
     Dosage: UNK
     Route: 062
     Dates: end: 201604

REACTIONS (5)
  - Patient dissatisfaction with treatment [None]
  - Application site irritation [None]
  - Product adhesion issue [None]
  - Application site irritation [None]
  - Product use issue [None]

NARRATIVE: CASE EVENT DATE: 201604
